FAERS Safety Report 6555810-1 (Version None)
Quarter: 2010Q1

REPORT INFORMATION
  Report Type: 
  Country: None (occurrence: None)
  Receive Date: 20100128
  Receipt Date: 20100125
  Transmission Date: 20100710
  Serious: Yes (Hospitalization, Other)
  Sender: FDA-Public Use
  Company Number: US-BAYER-200941953NA

PATIENT
  Age: 32 Year
  Sex: Female
  Weight: 85 kg

DRUGS (2)
  1. YAZ [Suspect]
     Indication: MENORRHAGIA
     Route: 048
     Dates: start: 20090915, end: 20091130
  2. INTEGRA [Concomitant]
     Indication: ANAEMIA
     Route: 048
     Dates: start: 20090915

REACTIONS (1)
  - PULMONARY EMBOLISM [None]
